FAERS Safety Report 21971481 (Version 1)
Quarter: 2023Q1

REPORT INFORMATION
  Report Type: Report from Study
  Country: US (occurrence: US)
  Receive Date: 20230209
  Receipt Date: 20230209
  Transmission Date: 20230418
  Serious: Yes (Other)
  Sender: FDA-Public Use
  Company Number: US-ABBVIE-4300081

PATIENT
  Age: 55 Year
  Sex: Female

DRUGS (1)
  1. SKYRIZI [Suspect]
     Active Substance: RISANKIZUMAB-RZAA
     Indication: Psoriatic arthropathy
     Route: 058

REACTIONS (7)
  - Brain stent insertion [Unknown]
  - Bladder cancer [Unknown]
  - Fall [Recovering/Resolving]
  - Blood pressure fluctuation [Not Recovered/Not Resolved]
  - COVID-19 [Recovered/Resolved]
  - Pain [Unknown]
  - Skin discolouration [Unknown]

NARRATIVE: CASE EVENT DATE: 20200401
